FAERS Safety Report 19886908 (Version 1)
Quarter: 2021Q3

REPORT INFORMATION
  Report Type: Spontaneous
  Country: FR (occurrence: FR)
  Receive Date: 20210927
  Receipt Date: 20210927
  Transmission Date: 20211014
  Serious: Yes (Death)
  Sender: FDA-Public Use
  Company Number: FR-MYLANLABS-2021M1064651

PATIENT
  Age: 52 Year
  Sex: Male

DRUGS (2)
  1. ATRA                               /00614702/ [Concomitant]
     Active Substance: ATRACURIUM BESYLATE
     Indication: ACUTE MYELOID LEUKAEMIA
     Dosage: UNK
     Route: 065
  2. AZACITIDINE. [Suspect]
     Active Substance: AZACITIDINE
     Indication: ACUTE MYELOID LEUKAEMIA
     Dosage: 525 MICROGRAM/SQ. METER, 28D CYCLE(75 MILLIGRAM/SQ. METER)
     Route: 058

REACTIONS (1)
  - Infection [Fatal]
